FAERS Safety Report 9842331 (Version 3)
Quarter: 2014Q1

REPORT INFORMATION
  Report Type: Spontaneous
  Country: SK (occurrence: SK)
  Receive Date: 20140124
  Receipt Date: 20140131
  Transmission Date: 20141002
  Serious: Yes (Death, Other)
  Sender: FDA-Public Use
  Company Number: SK-PFIZER INC-2014021067

PATIENT
  Sex: Male

DRUGS (1)
  1. SUNITINIB MALATE [Suspect]
     Indication: RENAL CANCER
     Dosage: 50 MG, CYCLIC (DOSE REGIMEN 4/2)
     Dates: start: 20130909, end: 20131224

REACTIONS (4)
  - Death [Fatal]
  - Empyema [Unknown]
  - Proteinuria [Unknown]
  - Skin toxicity [Unknown]
